FAERS Safety Report 7760367-3 (Version None)
Quarter: 2011Q3

REPORT INFORMATION
  Report Type: 
  Country: None (occurrence: None)
  Receive Date: 20110919
  Receipt Date: 20110908
  Transmission Date: 20111222
  Serious: Yes (Other)
  Sender: FDA-Public Use
  Company Number: PHFR2011GB02938

PATIENT
  Sex: Male
  Weight: 115 kg

DRUGS (2)
  1. CLOZAPINE [Suspect]
     Route: 048
     Dates: start: 20080101, end: 20110201
  2. CLOZAPINE [Suspect]
     Indication: SCHIZOPHRENIA
     Dosage: UNK MG,
     Route: 048
     Dates: start: 20061129

REACTIONS (3)
  - SALIVARY HYPERSECRETION [None]
  - BENIGN SALIVARY GLAND NEOPLASM [None]
  - PAROTID GLAND ENLARGEMENT [None]
